FAERS Safety Report 19916183 (Version 1)
Quarter: 2021Q4

REPORT INFORMATION
  Report Type: Spontaneous
  Country: CN (occurrence: CN)
  Receive Date: 20211005
  Receipt Date: 20211005
  Transmission Date: 20220304
  Serious: Yes (Other)
  Sender: FDA-Public Use
  Company Number: CN-BAXTER-2021BAX023827

PATIENT
  Age: 52 Year
  Sex: Female
  Weight: 55 kg

DRUGS (6)
  1. CYCLOPHOSPHAMIDE [Suspect]
     Active Substance: CYCLOPHOSPHAMIDE
     Indication: Breast cancer female
     Dosage: ENDOXAN 0.9G + 0.9% SODIUM CHLORIDE 100ML
     Route: 041
     Dates: start: 20200108, end: 20200108
  2. CYCLOPHOSPHAMIDE [Suspect]
     Active Substance: CYCLOPHOSPHAMIDE
     Dosage: DOSE REINTRODUCED
     Route: 041
  3. EPIRUBICIN [Suspect]
     Active Substance: EPIRUBICIN
     Indication: Breast cancer female
     Dosage: PHARMORUBICIN 140 MG + 0.9% SODIUM CHLORIDE 100 ML
     Route: 041
     Dates: start: 20200108, end: 20200108
  4. EPIRUBICIN [Suspect]
     Active Substance: EPIRUBICIN
     Dosage: DOSE REINTRODUCED
     Route: 041
  5. SODIUM CHLORIDE [Suspect]
     Active Substance: SODIUM CHLORIDE
     Indication: Medication dilution
     Dosage: ENDOXAN 0.9G + 0.9% SODIUM CHLORIDE 100 ML
     Route: 041
     Dates: start: 20200108, end: 20200108
  6. SODIUM CHLORIDE [Suspect]
     Active Substance: SODIUM CHLORIDE
     Dosage: PHARMORUBICIN 140 MG + 0.9% SODIUM CHLORIDE 100 ML
     Route: 041
     Dates: start: 20200108, end: 20200108

REACTIONS (1)
  - Agranulocytosis [Recovered/Resolved]

NARRATIVE: CASE EVENT DATE: 20200108
